FAERS Safety Report 18200593 (Version 3)
Quarter: 2020Q4

REPORT INFORMATION
  Report Type: Spontaneous
  Country: SE (occurrence: SE)
  Receive Date: 20200827
  Receipt Date: 20201005
  Transmission Date: 20210113
  Serious: Yes (Other)
  Sender: FDA-Public Use
  Company Number: SE-REGENERON PHARMACEUTICALS, INC.-2020-72450

PATIENT

DRUGS (6)
  1. EYLEA [Suspect]
     Active Substance: AFLIBERCEPT
     Dosage: ONCE
     Route: 031
     Dates: start: 20200602, end: 20200602
  2. EYLEA [Suspect]
     Active Substance: AFLIBERCEPT
     Dosage: ONCE
     Route: 031
     Dates: start: 20200702, end: 20200702
  3. EYLEA [Suspect]
     Active Substance: AFLIBERCEPT
     Indication: AGE-RELATED MACULAR DEGENERATION
     Dosage: ONCE
     Route: 031
     Dates: start: 20200422, end: 20200422
  4. EYLEA [Suspect]
     Active Substance: AFLIBERCEPT
     Dosage: LAST DOSE PRIOR EVENT
     Route: 031
     Dates: start: 20200728
  5. EYLEA [Suspect]
     Active Substance: AFLIBERCEPT
     Dosage: LAST DOSE PRIOR THE EVENT WAS 28-JUL-2020
     Dates: start: 201711
  6. EYLEA [Suspect]
     Active Substance: AFLIBERCEPT
     Indication: AGE-RELATED MACULAR DEGENERATION
     Dosage: LAST DOSE PRIOR THE EVENT WAS 28-JUL-2020
     Dates: start: 201711

REACTIONS (3)
  - Retinal haemorrhage [Not Recovered/Not Resolved]
  - Retinal vein thrombosis [Recovering/Resolving]
  - Blindness [Recovering/Resolving]

NARRATIVE: CASE EVENT DATE: 20200810
